FAERS Safety Report 24173698 (Version 1)
Quarter: 2024Q3

REPORT INFORMATION
  Report Type: Report from Study
  Country: US (occurrence: US)
  Receive Date: 20240805
  Receipt Date: 20240805
  Transmission Date: 20241017
  Serious: Yes (Hospitalization, Other)
  Sender: AMGEN
  Company Number: US-AMGEN-USASL2023066570

PATIENT
  Age: 34 Year
  Sex: Female

DRUGS (2)
  1. OTEZLA [Suspect]
     Active Substance: APREMILAST
     Indication: Psoriasis
     Dosage: UNK
     Route: 065
     Dates: start: 2018, end: 201810
  2. OTEZLA [Suspect]
     Active Substance: APREMILAST
     Dosage: UNK, BID
     Route: 065
     Dates: start: 202310, end: 202402

REACTIONS (4)
  - Clostridium difficile infection [Unknown]
  - Respiratory tract infection [Unknown]
  - Drug ineffective [Unknown]
  - Sinusitis [Unknown]

NARRATIVE: CASE EVENT DATE: 20180101
